FAERS Safety Report 21621463 (Version 1)
Quarter: 2022Q4

REPORT INFORMATION
  Report Type: Spontaneous
  Country: AT (occurrence: AT)
  Receive Date: 20221121
  Receipt Date: 20221121
  Transmission Date: 20230113
  Serious: Yes (Other)
  Sender: FDA-Public Use
  Company Number: AT-PFIZER INC-PV202200105420

PATIENT
  Age: 4 Year
  Sex: Male

DRUGS (8)
  1. CARBOPLATIN [Suspect]
     Active Substance: CARBOPLATIN
     Dosage: 2500 MG/M2
  2. METHOTREXATE SODIUM [Suspect]
     Active Substance: METHOTREXATE SODIUM
     Dosage: 10 G/M2
  3. VINCRISTINE [Suspect]
     Active Substance: VINCRISTINE
     Dosage: 6 MG/M2
  4. ETOPOSIDE [Suspect]
     Active Substance: ETOPOSIDE
     Dosage: 2400 MG/M2
  5. CISPLATIN [Suspect]
     Active Substance: CISPLATIN
     Dosage: 180 MG/M2
  6. CYCLOPHOSPHAMIDE [Suspect]
     Active Substance: CYCLOPHOSPHAMIDE
     Dosage: 6.4 G/M2
  7. IFOSFAMIDE [Suspect]
     Active Substance: IFOSFAMIDE
     Dosage: 13.5 G/M2
  8. THIOTEPA [Suspect]
     Active Substance: THIOTEPA
     Dosage: 900 MG/M2

REACTIONS (1)
  - Renal impairment [Unknown]
